FAERS Safety Report 9945206 (Version 1)
Quarter: 2014Q1

REPORT INFORMATION
  Report Type: Report from Study
  Country: US (occurrence: US)
  Receive Date: 20140303
  Receipt Date: 20140303
  Transmission Date: 20141002
  Serious: No
  Sender: FDA-Public Use
  Company Number: US-ABBVIE-13P-163-1052599-00

PATIENT
  Age: 58 Year
  Sex: Female
  Weight: 99.88 kg

DRUGS (8)
  1. HUMIRA [Suspect]
     Indication: PSORIATIC ARTHROPATHY
     Dates: start: 2010
  2. METOPROLOL [Concomitant]
     Indication: HYPERTENSION
  3. SIMVASTATIN [Concomitant]
     Indication: BLOOD CHOLESTEROL INCREASED
  4. GABAPENTIN [Concomitant]
     Indication: SPINAL OSTEOARTHRITIS
  5. BACLOFEN [Concomitant]
     Indication: SPINAL OSTEOARTHRITIS
  6. RANITIDINE [Concomitant]
     Indication: GASTROOESOPHAGEAL REFLUX DISEASE
  7. TRAMADOL [Concomitant]
     Indication: PAIN
  8. UNKNOWN MEDICATION [Concomitant]
     Indication: DEPRESSION

REACTIONS (7)
  - Wrong technique in drug usage process [Not Recovered/Not Resolved]
  - Injection site urticaria [Recovered/Resolved]
  - Unevaluable event [Recovered/Resolved]
  - Injection site pain [Not Recovered/Not Resolved]
  - Injection site pain [Unknown]
  - Device malfunction [Unknown]
  - Incorrect dose administered [Unknown]
